FAERS Safety Report 13053021 (Version 1)
Quarter: 2016Q4

REPORT INFORMATION
  Report Type: Report from Study
  Country: US (occurrence: US)
  Receive Date: 20161222
  Receipt Date: 20161222
  Transmission Date: 20170207
  Serious: Yes (Other)
  Sender: FDA-Public Use
  Company Number: US-ROCHE-1869978

PATIENT
  Age: 86 Year
  Sex: Male

DRUGS (1)
  1. LUCENTIS [Suspect]
     Active Substance: RANIBIZUMAB
     Indication: AGE-RELATED MACULAR DEGENERATION
     Dosage: RIGHT EYE
     Route: 050

REACTIONS (7)
  - Contusion [Unknown]
  - Visual impairment [Unknown]
  - Mydriasis [Unknown]
  - Pain [Unknown]
  - Visual acuity reduced [Unknown]
  - Metamorphopsia [Unknown]
  - Rib fracture [Unknown]

NARRATIVE: CASE EVENT DATE: 20161217
